FAERS Safety Report 22062294 (Version 2)
Quarter: 2023Q1

REPORT INFORMATION
  Report Type: Spontaneous
  Country: US (occurrence: US)
  Receive Date: 20230305
  Receipt Date: 20230327
  Transmission Date: 20230418
  Serious: No
  Sender: FDA-Public Use
  Company Number: US-GSKCCFUS-Case-01637432_AE-92445

PATIENT
  Age: 66 Year
  Sex: Female

DRUGS (1)
  1. TRELEGY ELLIPTA [Suspect]
     Active Substance: FLUTICASONE FUROATE\UMECLIDINIUM BROMIDE\VILANTEROL TRIFENATATE
     Indication: Product used for unknown indication
     Dosage: 1 PUFF(S), MO, 100/62.5/25
     Route: 055

REACTIONS (2)
  - Device use error [Unknown]
  - Product complaint [Unknown]

NARRATIVE: CASE EVENT DATE: 20230223
